FAERS Safety Report 24180020 (Version 1)
Quarter: 2024Q3

REPORT INFORMATION
  Report Type: Spontaneous
  Country: IT (occurrence: IT)
  Receive Date: 20240806
  Receipt Date: 20240806
  Transmission Date: 20241017
  Serious: Yes (Other)
  Sender: BIOVITRUM
  Company Number: IT-BIOVITRUM-2024-IT-010504

PATIENT
  Age: 3 Month
  Sex: Male

DRUGS (2)
  1. ANAKINRA [Suspect]
     Active Substance: ANAKINRA
     Indication: Wiskott-Aldrich syndrome
     Dosage: 3 MG/KG/DAY
  2. ANAKINRA [Suspect]
     Active Substance: ANAKINRA
     Indication: Inflammation
     Dosage: INCREASED AT 6 MG/KG/DAY

REACTIONS (2)
  - Off label use [Recovered/Resolved]
  - Eosinophilia [Recovering/Resolving]
